FAERS Safety Report 19904408 (Version 1)
Quarter: 2021Q4

REPORT INFORMATION
  Report Type: Spontaneous
  Country: BG (occurrence: BG)
  Receive Date: 20211001
  Receipt Date: 20211001
  Transmission Date: 20220303
  Serious: Yes (Hospitalization)
  Sender: FDA-Public Use
  Company Number: None

PATIENT
  Age: 66 Year
  Sex: Female

DRUGS (1)
  1. HYDROCHLOROTHIAZIDE\LOSARTAN [Suspect]
     Active Substance: HYDROCHLOROTHIAZIDE\LOSARTAN
     Indication: Hypertension
     Dosage: .5 DOSAGE FORMS DAILY; HALF A TABLET DAILY
     Route: 048
     Dates: start: 2015, end: 2020

REACTIONS (1)
  - Lentigo maligna [Recovered/Resolved with Sequelae]

NARRATIVE: CASE EVENT DATE: 20200301
